FAERS Safety Report 10186003 (Version 1)
Quarter: 2014Q2

REPORT INFORMATION
  Report Type: Spontaneous
  Country: DE (occurrence: DE)
  Receive Date: 20140521
  Receipt Date: 20140521
  Transmission Date: 20141212
  Serious: Yes (Other)
  Sender: FDA-Public Use
  Company Number: DE-BRISTOL-MYERS SQUIBB COMPANY-20731402

PATIENT
  Age: 75 Year
  Sex: Male
  Weight: 88 kg

DRUGS (1)
  1. ELIQUIS [Suspect]
     Indication: CEREBROVASCULAR ACCIDENT PROPHYLAXIS
     Route: 048
     Dates: start: 20140402, end: 20140424

REACTIONS (2)
  - Headache [Recovered/Resolved]
  - Pruritus [Recovered/Resolved]
